FAERS Safety Report 8552156 (Version 2)
Quarter: 2013Q1

REPORT INFORMATION
  Report Type: Spontaneous
  Country: US (occurrence: US)
  Receive Date: 20120508
  Receipt Date: 20130201
  Transmission Date: 20140127
  Serious: Yes (Hospitalization)
  Sender: FDA-Public Use
  Company Number: US-GLAXOSMITHKLINE-A0903551A

PATIENT
  Age: 63 Year
  Sex: Female
  Weight: 70.5 kg

DRUGS (1)
  1. AVANDIA [Suspect]
     Indication: DIABETES MELLITUS
     Dosage: 8MG PER DAY
     Route: 048
     Dates: start: 20021015, end: 20070503

REACTIONS (2)
  - Cardiac failure congestive [Not Recovered/Not Resolved]
  - Diastolic dysfunction [Unknown]
